FAERS Safety Report 6940276-X (Version None)
Quarter: 2010Q3

REPORT INFORMATION
  Report Type: 
  Country: None (occurrence: None)
  Receive Date: 20100825
  Receipt Date: 20100813
  Transmission Date: 20110219
  Serious: Yes (Other)
  Sender: FDA-Public Use
  Company Number: PHHY2010DE54096

PATIENT
  Sex: Male

DRUGS (8)
  1. RASILEZ [Suspect]
     Indication: HYPERTENSION
     Dosage: 75 MG/DAY
     Dates: start: 20100201, end: 20100701
  2. RASILEZ [Suspect]
     Dosage: 375 MG/DAY
     Dates: start: 20100701, end: 20100812
  3. RASILEZ [Suspect]
     Dosage: 75 MG/DAY
     Dates: start: 20100813
  4. RAMIPRIL [Concomitant]
     Dosage: 1 DF, QD
  5. SIMVASTATIN [Concomitant]
     Dosage: UNK
  6. CLOPIDOGREL [Concomitant]
     Indication: CORONARY ARTERY DISEASE
     Dosage: 75 MG/DAY
  7. ASPIRIN [Concomitant]
     Indication: CORONARY ARTERY DISEASE
     Dosage: UNK
  8. RANITIDINE [Concomitant]
     Dosage: UNK

REACTIONS (5)
  - CONFUSIONAL STATE [None]
  - DIZZINESS [None]
  - FATIGUE [None]
  - HALLUCINATION [None]
  - OVERDOSE [None]
